FAERS Safety Report 13353463 (Version 1)
Quarter: 2017Q1

REPORT INFORMATION
  Report Type: Report from Study
  Country: BR (occurrence: BR)
  Receive Date: 20170321
  Receipt Date: 20170321
  Transmission Date: 20170429
  Serious: Yes (Other)
  Sender: FDA-Public Use
  Company Number: BR-CIPLA LTD.-2017BR04426

PATIENT

DRUGS (7)
  1. LAMOTRIGINE. [Suspect]
     Active Substance: LAMOTRIGINE
     Indication: SEIZURE
     Dosage: UNK
     Route: 065
  2. VIMPAT [Suspect]
     Active Substance: LACOSAMIDE
     Dosage: 150 MG, BID
     Route: 048
     Dates: start: 20160722
  3. LACOSAMIDE. [Suspect]
     Active Substance: LACOSAMIDE
     Indication: EPILEPSY
     Dosage: 150 MG, BID
     Route: 048
     Dates: start: 20160722
  4. RISPERIDONE. [Concomitant]
     Active Substance: RISPERIDONE
     Indication: NERVOUS SYSTEM DISORDER
     Dosage: 3 MG, BID
     Route: 048
     Dates: start: 2016
  5. VIMPAT [Suspect]
     Active Substance: LACOSAMIDE
     Indication: EPILEPSY
     Dosage: 100 MG, BID
     Route: 048
     Dates: start: 20160216, end: 201607
  6. CARBAMAZEPINE. [Concomitant]
     Active Substance: CARBAMAZEPINE
     Indication: SEIZURE
     Dosage: 400 MG, BID
     Route: 048
     Dates: start: 2001
  7. FRISIUM [Concomitant]
     Active Substance: CLOBAZAM
     Indication: SEIZURE
     Dosage: 10 MG, TID
     Route: 048
     Dates: start: 2015

REACTIONS (1)
  - Epilepsy [Not Recovered/Not Resolved]
